FAERS Safety Report 9741346 (Version 1)
Quarter: 2013Q4

REPORT INFORMATION
  Report Type: Report from Study
  Country: US (occurrence: US)
  Receive Date: 20131209
  Receipt Date: 20131209
  Transmission Date: 20140711
  Serious: Yes (Other)
  Sender: FDA-Public Use
  Company Number: US-ABBVIE-13P-163-1174623-00

PATIENT
  Sex: Female

DRUGS (11)
  1. HUMIRA [Suspect]
     Indication: RHEUMATOID ARTHRITIS
  2. LIPITOR [Concomitant]
     Indication: BLOOD CHOLESTEROL ABNORMAL
  3. AMLODIPINE [Concomitant]
     Indication: BLOOD PRESSURE
  4. KLOR-CON [Concomitant]
     Indication: ELECTROLYTE SUBSTITUTION THERAPY
  5. FUROSEMIDE [Concomitant]
     Indication: DIURETIC THERAPY
  6. SPIRONOLACTONE [Concomitant]
     Indication: BLOOD PRESSURE
  7. ASPIRIN [Concomitant]
     Indication: CARDIOVASCULAR DISORDER
  8. PLAVIX [Concomitant]
     Indication: CARDIOVASCULAR DISORDER
  9. LOSARTAN [Concomitant]
     Indication: BLOOD PRESSURE
  10. ALBUTEROL [Concomitant]
     Indication: PRODUCT USED FOR UNKNOWN INDICATION
  11. ADVAIR [Concomitant]
     Indication: PRODUCT USED FOR UNKNOWN INDICATION

REACTIONS (9)
  - Peripheral vascular disorder [Unknown]
  - Arterial stent insertion [Unknown]
  - Coronary artery bypass [Unknown]
  - Tendon operation [Unknown]
  - Muscle spasms [Unknown]
  - Injury [Unknown]
  - Fall [Unknown]
  - Blood pressure abnormal [Unknown]
  - Sleep apnoea syndrome [Unknown]
